FAERS Safety Report 6558486-2 (Version None)
Quarter: 2010Q1

REPORT INFORMATION
  Report Type: 
  Country: None (occurrence: None)
  Receive Date: 20100129
  Receipt Date: 20100120
  Transmission Date: 20100710
  Serious: Yes (Other)
  Sender: FDA-Public Use
  Company Number: GXKR2009CL13816

PATIENT
  Age: 13 Year
  Sex: Female

DRUGS (9)
  1. CYCLOSPORINE [Suspect]
     Indication: BONE MARROW FAILURE
     Dosage: 10 MG/KG/DAY
     Route: 065
  2. METHYLPREDNISOLONE [Suspect]
     Indication: BONE MARROW FAILURE
     Dosage: 5 MG/KG/DAY
     Route: 065
  3. PREDNISONE TAB [Suspect]
     Dosage: 1 MG/KG/DAY
     Route: 048
  4. PREDNISONE TAB [Suspect]
     Dosage: 7.5 MG/DAY
     Route: 048
  5. ORAL CONTRACEPTIVE NOS [Suspect]
     Indication: ANOVULATORY CYCLE
     Dosage: 30 UG/DAY
     Route: 048
  6. ORAL CONTRACEPTIVE NOS [Suspect]
     Indication: METRORRHAGIA
     Dosage: 90 UG/DAY
     Route: 048
  7. TRANEXAMIC ACID [Concomitant]
     Indication: METRORRHAGIA
     Route: 065
  8. BLOOD TRANSFUSION, AUXILIARY PRODUCTS [Concomitant]
     Indication: METRORRHAGIA
     Route: 065
  9. ANTI-THYMOCYTE GLOBULIN NOS [Concomitant]
     Dosage: 15 MG/DAY

REACTIONS (4)
  - ABDOMINAL PAIN [None]
  - HEPATIC LESION [None]
  - PELIOSIS HEPATIS [None]
  - PERITONEAL HAEMORRHAGE [None]
